FAERS Safety Report 20774823 (Version 2)
Quarter: 2022Q2

REPORT INFORMATION
  Report Type: Spontaneous
  Country: JP (occurrence: JP)
  Receive Date: 20220502
  Receipt Date: 20220511
  Transmission Date: 20220721
  Serious: Yes (Other)
  Sender: FDA-Public Use
  Company Number: JP-TEVA-2022-JP-2033055

PATIENT

DRUGS (4)
  1. PREDNISOLONE [Suspect]
     Active Substance: PREDNISOLONE
     Indication: Angioimmunoblastic T-cell lymphoma
     Dosage: ADMINISTERED UNDER THE R-CHOP REGIMEN
     Route: 065
  2. RITUXIMAB [Suspect]
     Active Substance: RITUXIMAB
     Indication: Angioimmunoblastic T-cell lymphoma
     Dosage: ADMINISTERED UNDER THE R-CHOP REGIMEN
     Route: 065
  3. CYCLOPHOSPHAMIDE [Suspect]
     Active Substance: CYCLOPHOSPHAMIDE
     Indication: Angioimmunoblastic T-cell lymphoma
     Dosage: ADMINISTERED UNDER THE R-CHOP REGIMEN
     Route: 065
  4. VINCRISTINE [Suspect]
     Active Substance: VINCRISTINE
     Indication: Angioimmunoblastic T-cell lymphoma
     Dosage: ADMINISTERED UNDER THE R-CHOP REGIMEN
     Route: 065

REACTIONS (1)
  - Myelodysplastic syndrome [Unknown]
